FAERS Safety Report 12579977 (Version 1)
Quarter: 2016Q3

REPORT INFORMATION
  Report Type: Spontaneous
  Country: BE (occurrence: BE)
  Receive Date: 20160721
  Receipt Date: 20160721
  Transmission Date: 20161109
  Serious: Yes (Other)
  Sender: FDA-Public Use
  Company Number: BE-PFIZER INC-2016331738

PATIENT
  Age: 60 Year
  Sex: Female

DRUGS (5)
  1. NOBITEN /01339101/ [Concomitant]
     Active Substance: NEBIVOLOL
     Indication: HYPERTENSION
     Dosage: UNK
  2. L-THYROXINE /00068001/ [Concomitant]
     Active Substance: LEVOTHYROXINE
     Dosage: UNK
  3. PANTOMED [Suspect]
     Active Substance: DEXPANTHENOL
     Indication: GASTROOESOPHAGEAL REFLUX DISEASE
     Dosage: 40 MG, QD
     Route: 065
  4. SARTAN [Concomitant]
     Active Substance: LOSARTAN POTASSIUM
     Indication: HYPERTENSION
     Dosage: UNK
  5. VESICARE [Concomitant]
     Active Substance: SOLIFENACIN SUCCINATE
     Dosage: UNK

REACTIONS (1)
  - Chronic kidney disease [Unknown]
